FAERS Safety Report 15376276 (Version 1)
Quarter: 2018Q3

REPORT INFORMATION
  Report Type: Report from Study
  Country: TW (occurrence: TW)
  Receive Date: 20180912
  Receipt Date: 20180912
  Transmission Date: 20181010
  Serious: Yes (Hospitalization)
  Sender: FDA-Public Use
  Company Number: TW-TAKEDA-2018TUS027037

PATIENT
  Age: 63 Year
  Sex: Male

DRUGS (1)
  1. VEDOLIZUMAB [Suspect]
     Active Substance: VEDOLIZUMAB
     Indication: CROHN^S DISEASE
     Dosage: UNK
     Route: 042
     Dates: start: 20180410, end: 20180901

REACTIONS (7)
  - Biliary dilatation [Unknown]
  - Liver function test increased [Unknown]
  - Haemangioma of liver [Unknown]
  - Gallbladder disorder [Unknown]
  - C-reactive protein increased [Unknown]
  - Hepatic cyst [Unknown]
  - Leukocytosis [Unknown]
